FAERS Safety Report 4317301-8 (Version None)
Quarter: 2004Q1

REPORT INFORMATION
  Report Type: 
  Country: None (occurrence: None)
  Receive Date: 20040315
  Receipt Date: 20040315
  Transmission Date: 20041129
  Serious: No
  Sender: FDA-Public Use
  Company Number: None

PATIENT
  Age: 69 Year
  Sex: Male
  Weight: 77.1115 kg

DRUGS (1)
  1. ENALAPRIL 5 MG PO DAILY [Suspect]
     Indication: HYPERTENSION
     Dosage: 5 MG DAILY
     Dates: end: 20040126

REACTIONS (3)
  - BLOOD CREATININE INCREASED [None]
  - FLUID INTAKE REDUCED [None]
  - URINE OUTPUT DECREASED [None]
